FAERS Safety Report 5733891-2 (Version None)
Quarter: 2008Q2

REPORT INFORMATION
  Report Type: 
  Country: None (occurrence: None)
  Receive Date: 20080509
  Receipt Date: 20080428
  Transmission Date: 20081010
  Serious: Yes (Other)
  Sender: FDA-Public Use
  Company Number: FR-PFIZER INC-2008037145

PATIENT
  Sex: Male

DRUGS (3)
  1. VIAGRA [Suspect]
     Route: 048
  2. NEBIVOLOL HCL [Interacting]
     Indication: CARDIAC FAILURE
  3. ALCOHOL [Interacting]

REACTIONS (3)
  - DRUG INTERACTION [None]
  - LOSS OF CONSCIOUSNESS [None]
  - MALAISE [None]
